FAERS Safety Report 7051389-9 (Version None)
Quarter: 2010Q4

REPORT INFORMATION
  Report Type: 
  Country: None (occurrence: None)
  Receive Date: 20101018
  Receipt Date: 20101018
  Transmission Date: 20110411
  Serious: Yes (Disabling, Other)
  Sender: FDA-Public Use
  Company Number: None

PATIENT
  Weight: 63.5036 kg

DRUGS (1)
  1. NUVARING [Suspect]
     Indication: DYSMENORRHOEA
     Dosage: 1 3 WEEKS VAG
     Route: 067
     Dates: start: 20070220, end: 20100427

REACTIONS (6)
  - ALOPECIA [None]
  - DEPRESSION [None]
  - DYSMENORRHOEA [None]
  - MOOD SWINGS [None]
  - PREMENSTRUAL SYNDROME [None]
  - WEIGHT INCREASED [None]
